FAERS Safety Report 10227932 (Version 2)
Quarter: 2014Q2

REPORT INFORMATION
  Report Type: Spontaneous
  Country: GB (occurrence: None)
  Receive Date: 20140606
  Receipt Date: 20140618
  Transmission Date: 20141212
  Serious: Yes (Other)
  Sender: FDA-Public Use
  Company Number: 2350340

PATIENT
  Sex: Female

DRUGS (6)
  1. GENTAMICIN SULFATE [Suspect]
     Indication: PRODUCT USED FOR UNKNOWN INDICATION
  2. FLUCLOXACILLIN [Suspect]
     Indication: PRODUCT USED FOR UNKNOWN INDICATION
  3. IBUPROFEN [Suspect]
     Indication: PRODUCT USED FOR UNKNOWN INDICATION
  4. METFORMIN HYDROCHLORIDE [Suspect]
     Indication: DIABETES MELLITUS
  5. APIXABAN [Suspect]
     Indication: HIP ARTHROPLASTY
  6. APIXABAN [Suspect]
     Indication: KNEE ARTHROPLASTY

REACTIONS (2)
  - Drug interaction [None]
  - Renal failure [None]
